FAERS Safety Report 6915142-6 (Version None)
Quarter: 2010Q3

REPORT INFORMATION
  Report Type: 
  Country: None (occurrence: None)
  Receive Date: 20100809
  Receipt Date: 20100730
  Transmission Date: 20110219
  Serious: Yes (Congenital Anomaly)
  Sender: FDA-Public Use
  Company Number: US-ABBOTT-10P-163-0661212-00

PATIENT
  Sex: Female

DRUGS (1)
  1. HUMIRA [Suspect]
     Indication: DRUG EXPOSURE DURING PREGNANCY
     Route: 064

REACTIONS (4)
  - CONGENITAL HEART VALVE DISORDER [None]
  - DRUG EXPOSURE DURING PREGNANCY [None]
  - HEART DISEASE CONGENITAL [None]
  - UMBILICAL CORD ABNORMALITY [None]
